FAERS Safety Report 17129913 (Version 2)
Quarter: 2021Q2

REPORT INFORMATION
  Report Type: Spontaneous
  Country: US (occurrence: US)
  Receive Date: 20191209
  Receipt Date: 20210615
  Transmission Date: 20210716
  Serious: No
  Sender: FDA-Public Use
  Company Number: US-SA-2019SA338351

PATIENT
  Sex: Male

DRUGS (1)
  1. DUPIXENT [Suspect]
     Active Substance: DUPILUMAB
     Indication: DERMATITIS ALLERGIC
     Dosage: 300 MG, QOW
     Route: 058

REACTIONS (7)
  - Visual impairment [Unknown]
  - Injection site pruritus [Unknown]
  - Product use in unapproved indication [Unknown]
  - Injection site rash [Unknown]
  - Injection site urticaria [Unknown]
  - Injection site erythema [Unknown]
  - Injection site swelling [Unknown]
